FAERS Safety Report 8882579 (Version 2)
Quarter: 2013Q1

REPORT INFORMATION
  Report Type: Spontaneous
  Country: FR (occurrence: FR)
  Receive Date: 20121102
  Receipt Date: 20130325
  Transmission Date: 20140127
  Serious: Yes (Hospitalization, Other)
  Sender: FDA-Public Use
  Company Number: FR-ELI_LILLY_AND_COMPANY-FR201210006351

PATIENT
  Age: 90 Year
  Sex: Female
  Weight: 52.6 kg

DRUGS (25)
  1. FORSTEO [Suspect]
     Indication: OSTEOPOROSIS
     Dosage: 20 UG, QD
     Route: 058
     Dates: start: 20120711, end: 20120729
  2. MODURETIC [Concomitant]
     Dosage: UNK
  3. PARIET [Concomitant]
     Dosage: 10 MG, UNK
  4. ELISOR [Concomitant]
     Dosage: 10 MG, UNK
  5. CEDEMIN [Concomitant]
     Dosage: UNK
  6. PIASCLEDINE                        /00809501/ [Concomitant]
     Dosage: UNK
  7. UVEDOSE [Concomitant]
     Dosage: UNK
  8. STILNOX [Concomitant]
     Dosage: UNK
  9. IXPRIM [Concomitant]
     Dosage: UNK
  10. DUPLOPIRIN [Concomitant]
     Dosage: UNK
  11. CALCIUM [Concomitant]
     Dosage: UNK
  12. CROMABAK [Concomitant]
     Dosage: UNK
  13. AZOPT [Concomitant]
     Dosage: UNK
  14. TIMOPTOL [Concomitant]
     Dosage: UNK
  15. XALATAN [Concomitant]
     Dosage: UNK
  16. SPASFON [Concomitant]
     Dosage: UNK
  17. EDUCTYL [Concomitant]
     Dosage: UNK
  18. TEMESTA [Concomitant]
     Dosage: UNK
  19. CARBOSYLANE [Concomitant]
     Dosage: UNK
  20. PROTEIN [Concomitant]
     Dosage: UNK
  21. FRESUBIN [Concomitant]
     Dosage: UNK
  22. MORPHINE [Concomitant]
     Dosage: UNK
  23. OXYCODONE [Concomitant]
  24. TARDYFERON [Concomitant]
     Dosage: UNK
  25. LOVENOX [Concomitant]
     Dosage: UNK

REACTIONS (9)
  - Femur fracture [Unknown]
  - Fall [Unknown]
  - Renal failure [Unknown]
  - Rhabdomyolysis [Unknown]
  - Pulmonary congestion [Unknown]
  - Clostridium difficile infection [Unknown]
  - Superinfection [Unknown]
  - Eschar [Unknown]
  - Pain [Unknown]
